FAERS Safety Report 7276252-X (Version None)
Quarter: 2010Q4

REPORT INFORMATION
  Report Type: 
  Country: None (occurrence: None)
  Receive Date: 20101206
  Receipt Date: 20100819
  Transmission Date: 20110411
  Serious: No
  Sender: FDA-Public Use
  Company Number: 2010SP045104

PATIENT
  Age: 30 Year
  Sex: Female

DRUGS (1)
  1. SAPHRIS [Suspect]
     Indication: SCHIZOPHRENIA
     Dosage: 10 MG;BID;SL
     Route: 060
     Dates: start: 20100701, end: 20100819

REACTIONS (1)
  - HYPOAESTHESIA ORAL [None]
